FAERS Safety Report 20876682 (Version 1)
Quarter: 2022Q2

REPORT INFORMATION
  Report Type: Spontaneous
  Country: NO (occurrence: NO)
  Receive Date: 20220526
  Receipt Date: 20220526
  Transmission Date: 20220720
  Serious: Yes (Other)
  Sender: FDA-Public Use
  Company Number: None

PATIENT
  Age: 29 Year
  Sex: Female
  Weight: 77 kg

DRUGS (2)
  1. PREDNISOLONE [Interacting]
     Active Substance: PREDNISOLONE
     Indication: Autoimmune arthritis
     Dosage: UNIT DOSE: 20 MG, STRENGTH: 20 MG, FREQUENCY TIME : 1 DAY
     Route: 048
  2. COMIRNATY [Interacting]
     Active Substance: TOZINAMERAN
     Indication: Immunisation
     Dosage: DOSE NO. IN SERIES: 3 VACCINATION SITE: LEFTARM, STRENGTH: 30 UG
     Route: 030

REACTIONS (11)
  - Autoimmune arthritis [Recovering/Resolving]
  - Joint swelling [Unknown]
  - Arthralgia [Unknown]
  - Walking aid user [Unknown]
  - Erythema [Unknown]
  - Arthritis [Unknown]
  - Vaccination site pain [Unknown]
  - Drug ineffective [Unknown]
  - Mobility decreased [Unknown]
  - COVID-19 immunisation [Unknown]
  - Drug interaction [Unknown]

NARRATIVE: CASE EVENT DATE: 20220101
